FAERS Safety Report 14415345 (Version 1)
Quarter: 2018Q1

REPORT INFORMATION
  Report Type: Spontaneous
  Country: US (occurrence: US)
  Receive Date: 20180121
  Receipt Date: 20180121
  Transmission Date: 20180509
  Serious: Yes (Death, Other)
  Sender: FDA-Public Use
  Company Number: PHHY2018US007439

PATIENT
  Age: 61 Year
  Sex: Female

DRUGS (4)
  1. TACROLIMUS. [Suspect]
     Active Substance: TACROLIMUS
     Indication: STEM CELL TRANSPLANT
     Route: 065
  2. TRIMETHOPRIM SULFAMETHOXAZOLE [Concomitant]
     Active Substance: SULFAMETHOXAZOLE\TRIMETHOPRIM
     Indication: PROPHYLAXIS
     Dosage: 800- TO 160-MG BID N SATURDAYS AND SUNDAYS ONLY
     Route: 048
  3. RITUXIMAB. [Concomitant]
     Active Substance: RITUXIMAB
     Indication: IMMUNOSUPPRESSANT DRUG THERAPY
     Dosage: ONE DOSE
     Route: 065
  4. TACROLIMUS. [Suspect]
     Active Substance: TACROLIMUS
     Indication: IMMUNOSUPPRESSANT DRUG THERAPY

REACTIONS (8)
  - Fungaemia [Fatal]
  - Embolism [Fatal]
  - Starvation [Fatal]
  - Nephropathy toxic [Unknown]
  - Renal tubular necrosis [Unknown]
  - Bacteraemia [Fatal]
  - Renal failure [Unknown]
  - Graft versus host disease in gastrointestinal tract [Fatal]
